FAERS Safety Report 24593261 (Version 1)
Quarter: 2024Q4

REPORT INFORMATION
  Report Type: Spontaneous
  Country: US (occurrence: None)
  Receive Date: 20241107
  Receipt Date: 20241107
  Transmission Date: 20250114
  Serious: Yes (Death)
  Sender: Public
  Company Number: None

PATIENT
  Age: 62 Year
  Sex: Female

DRUGS (1)
  1. LENALIDOMIDE [Suspect]
     Active Substance: LENALIDOMIDE
     Indication: Plasma cell myeloma
     Dosage: FREQUENCY : DAILY;?
     Route: 048
     Dates: start: 20230426, end: 20240926

REACTIONS (5)
  - Thrombocytopenia [None]
  - Abdominal pain lower [None]
  - Plasma cell leukaemia [None]
  - Leptomeningeal myelomatosis [None]
  - Mental status changes [None]

NARRATIVE: CASE EVENT DATE: 20241021
